FAERS Safety Report 11906732 (Version 1)
Quarter: 2016Q1

REPORT INFORMATION
  Report Type: Spontaneous
  Country: US (occurrence: US)
  Receive Date: 20160111
  Receipt Date: 20160111
  Transmission Date: 20160526
  Serious: Yes (Death, Other)
  Sender: FDA-Public Use
  Company Number: PHHY2015US171064

PATIENT
  Age: 64 Year
  Sex: Male

DRUGS (7)
  1. VERAPAMIL [Concomitant]
     Active Substance: VERAPAMIL HYDROCHLORIDE
     Indication: PRODUCT USED FOR UNKNOWN INDICATION
     Dosage: 240 MG, UNK
     Route: 065
  2. DIAZOXIDE [Concomitant]
     Active Substance: DIAZOXIDE
     Indication: PRODUCT USED FOR UNKNOWN INDICATION
     Route: 065
  3. PREDNISONE. [Suspect]
     Active Substance: PREDNISONE
     Indication: HYPOGLYCAEMIA
     Dosage: 75 TO 100 MG, QD
     Route: 048
  4. PREDNISONE. [Suspect]
     Active Substance: PREDNISONE
     Dosage: 80 MG, (EACH MORNING), 20 MG, (EACH EVENING)
     Route: 065
  5. ACARBOSE. [Suspect]
     Active Substance: ACARBOSE
     Indication: HYPOGLYCAEMIA
     Route: 065
  6. GLUCOS [Concomitant]
     Indication: HYPOGLYCAEMIA
     Route: 065
  7. ACARBOSE. [Suspect]
     Active Substance: ACARBOSE
     Dosage: 50 MG, UNK
     Route: 065

REACTIONS (3)
  - Hypertension [Fatal]
  - Cushingoid [Unknown]
  - Drug ineffective [Unknown]
